FAERS Safety Report 26091989 (Version 1)
Quarter: 2025Q4

REPORT INFORMATION
  Report Type: Report from Study
  Country: ZA (occurrence: ZA)
  Receive Date: 20251126
  Receipt Date: 20251126
  Transmission Date: 20260117
  Serious: Yes (Other)
  Sender: ROCHE
  Company Number: ZA-ROCHE-10000034767

PATIENT
  Age: 68 Year
  Sex: Female

DRUGS (1)
  1. VABYSMO [Suspect]
     Active Substance: FARICIMAB-SVOA
     Indication: Macular degeneration
     Dosage: 2ND INJECT:  26-AUG-2024 (12 WEEKS)3RD INJECT:  11-OCT-2024 (6 WEEKS)
     Route: 050
     Dates: start: 20240607

REACTIONS (4)
  - Optical coherence tomography abnormal [Not Recovered/Not Resolved]
  - Off label use [Unknown]
  - Visual impairment [Unknown]
  - Retinal thickening [Unknown]

NARRATIVE: CASE EVENT DATE: 20240826
